FAERS Safety Report 13329296 (Version 1)
Quarter: 2017Q1

REPORT INFORMATION
  Report Type: Spontaneous
  Country: TN (occurrence: TN)
  Receive Date: 20170313
  Receipt Date: 20170313
  Transmission Date: 20170428
  Serious: Yes (Other)
  Sender: FDA-Public Use
  Company Number: TN-JUBILANT CADISTA PHARMACEUTICALS-2017JUB00067

PATIENT
  Age: 25 Year
  Sex: Female

DRUGS (1)
  1. METHYLPREDNISOLONE. [Suspect]
     Active Substance: METHYLPREDNISOLONE
     Dosage: ^PULSED MONTHLY^; 5 BOLUSES
     Route: 065
     Dates: start: 2014

REACTIONS (1)
  - Hepatitis [Recovered/Resolved]
